FAERS Safety Report 21134868 (Version 4)
Quarter: 2022Q3

REPORT INFORMATION
  Report Type: Spontaneous
  Country: US (occurrence: US)
  Receive Date: 20220727
  Receipt Date: 20220826
  Transmission Date: 20221026
  Serious: Yes (Hospitalization)
  Sender: FDA-Public Use
  Company Number: US-PFIZER INC-202200713923

PATIENT
  Age: 73 Year
  Sex: Male
  Weight: 81.19 kg

DRUGS (2)
  1. RETACRIT [Suspect]
     Active Substance: EPOETIN ALFA-EPBX
     Dosage: EVERY OTHER WEEK
     Route: 058
  2. RETACRIT [Suspect]
     Active Substance: EPOETIN ALFA-EPBX
     Dosage: 20000 IU (APPLY 10,000U SC X 2 DOSES WEEKLY)
     Route: 058

REACTIONS (2)
  - Haemoglobin decreased [Unknown]
  - Off label use [Unknown]
